FAERS Safety Report 10102206 (Version 2)
Quarter: 2014Q2

REPORT INFORMATION
  Report Type: Spontaneous
  Country: GB (occurrence: None)
  Receive Date: 20140422
  Receipt Date: 20140430
  Transmission Date: 20141212
  Serious: Yes (Hospitalization)
  Sender: FDA-Public Use
  Company Number: AUR-APL-2014-04789

PATIENT
  Age: 74 Year
  Sex: Male

DRUGS (2)
  1. CLOPIDOGREL [Suspect]
     Indication: ANTIPLATELET THERAPY
  2. ASPIRIN [Suspect]
     Indication: ANTIPLATELET THERAPY

REACTIONS (12)
  - Haematuria [None]
  - Obstructive uropathy [None]
  - Surgical procedure repeated [None]
  - Thrombosis [None]
  - Haemoglobin decreased [None]
  - Haemodynamic instability [None]
  - Renal failure [None]
  - Urinary bladder haemorrhage [None]
  - Wound complication [None]
  - Hypotension [None]
  - Abdominal distension [None]
  - Hydronephrosis [None]
